FAERS Safety Report 20711491 (Version 1)
Quarter: 2022Q2

REPORT INFORMATION
  Report Type: Spontaneous
  Country: US (occurrence: None)
  Receive Date: 20220414
  Receipt Date: 20220414
  Transmission Date: 20220721
  Serious: Yes (Other)
  Sender: FDA-Public Use
  Company Number: None

PATIENT
  Sex: Female

DRUGS (1)
  1. CALCIUM ACETATE [Suspect]
     Active Substance: CALCIUM ACETATE

REACTIONS (4)
  - Treatment failure [None]
  - Nausea [None]
  - Depressed mood [None]
  - Abdominal pain upper [None]
